FAERS Safety Report 13508086 (Version 5)
Quarter: 2018Q2

REPORT INFORMATION
  Report Type: Spontaneous
  Country: JP (occurrence: JP)
  Receive Date: 20170503
  Receipt Date: 20180405
  Transmission Date: 20180711
  Serious: Yes (Death, Other)
  Sender: FDA-Public Use
  Company Number: JP-ROCHE-1925111

PATIENT
  Age: 59 Year
  Sex: Female
  Weight: 54 kg

DRUGS (12)
  1. PACLITAXEL. [Suspect]
     Active Substance: PACLITAXEL
     Indication: BREAST CANCER
     Dosage: 13 TIMES?THE FRACTIONATION DOSE FREQUENCY IS UNCERTAIN. ?MOST RECENT DOSE PRIOR TO THE EVENT 12/APR/
     Route: 041
     Dates: start: 20161212
  2. ASTOMIN (JAPAN) [Concomitant]
     Dosage: DOSAGE IS UNCERTAIN.
     Route: 065
     Dates: start: 20161202, end: 20161215
  3. TRAVELMIN (DIPHENHYDRAMINE SALICYLATE/DIPROPHYLLINE) [Concomitant]
     Active Substance: DIPHENHYDRAMINE SALICYLATE\DYPHYLLINE
     Dosage: DOSAGE IS UNCERTAIN.
     Route: 065
     Dates: start: 20161212, end: 20170122
  4. AVASTIN [Suspect]
     Active Substance: BEVACIZUMAB
     Indication: BREAST CANCER
     Dosage: 9 TIMES?MOST RECENT DOSE PRIOR TO THE EVENT 12/APR/2017
     Route: 041
     Dates: start: 20161212
  5. FUROSEMIDE. [Concomitant]
     Active Substance: FUROSEMIDE
     Dosage: DOSAGE IS UNCERTAIN.
     Route: 065
     Dates: start: 20170407
  6. MOHRUS TAPE [Concomitant]
     Active Substance: KETOPROFEN
     Dosage: DOSAGE IS UNCERTAIN.
     Route: 061
     Dates: start: 20170412
  7. CODEINE [Concomitant]
     Active Substance: CODEINE
     Dosage: DOSAGE IS UNCERTAIN.
     Route: 065
     Dates: start: 20161226
  8. MAGMITT [Concomitant]
     Active Substance: MAGNESIUM OXIDE
     Dosage: DOSAGE IS UNCERTAIN.
     Route: 065
     Dates: start: 20150402, end: 20170122
  9. AMLODIPINE [Concomitant]
     Active Substance: AMLODIPINE BESYLATE
     Dosage: DOSAGE IS UNCERTAIN.
     Route: 065
     Dates: start: 20150401
  10. OXYCONTIN [Concomitant]
     Active Substance: OXYCODONE HYDROCHLORIDE
     Route: 065
     Dates: start: 20170423, end: 20170426
  11. OXYCONTIN [Concomitant]
     Active Substance: OXYCODONE HYDROCHLORIDE
     Dosage: DOSAGE IS UNCERTAIN.
     Route: 065
     Dates: start: 20161212, end: 20170122
  12. SHAKUYAKUKANZOTO [Concomitant]
     Active Substance: HERBALS
     Dosage: DOSAGE IS UNCERTAIN.?KRACIE SHAKUYAKUKANZOTO EXTRACT FINE GRANULES
     Route: 048
     Dates: start: 20170127, end: 20170323

REACTIONS (9)
  - Hepatic infarction [Fatal]
  - Nausea [Unknown]
  - Back pain [Unknown]
  - Eczema asteatotic [Unknown]
  - Portal vein thrombosis [Fatal]
  - Deep vein thrombosis [Unknown]
  - Pulmonary tumour thrombotic microangiopathy [Unknown]
  - Hypoxia [Fatal]
  - Myocardial infarction [Unknown]

NARRATIVE: CASE EVENT DATE: 20170414
